FAERS Safety Report 20744848 (Version 2)
Quarter: 2022Q2

REPORT INFORMATION
  Report Type: Spontaneous
  Country: US (occurrence: US)
  Receive Date: 20220425
  Receipt Date: 20220512
  Transmission Date: 20220720
  Serious: Yes (Other)
  Sender: FDA-Public Use
  Company Number: US-PFIZER INC-202200583817

PATIENT
  Age: 64 Year
  Sex: Female

DRUGS (3)
  1. DILANTIN [Suspect]
     Active Substance: PHENYTOIN
     Dosage: 300 MG
     Dates: start: 20110203
  2. DILANTIN [Suspect]
     Active Substance: PHENYTOIN
     Dosage: 300 MG (3 CAPSULES OF 100 MG), EVERY NIGHT
     Route: 048
     Dates: start: 20101208, end: 20111014
  3. PHENYTOIN [Suspect]
     Active Substance: PHENYTOIN
     Dosage: UNK

REACTIONS (4)
  - Poisoning [Unknown]
  - Drug hypersensitivity [Unknown]
  - Neurodegenerative disorder [Unknown]
  - Pain [Unknown]
